FAERS Safety Report 8432565-7 (Version None)
Quarter: 2012Q2

REPORT INFORMATION
  Report Type: 
  Country: None (occurrence: None)
  Receive Date: 20120613
  Receipt Date: 20120605
  Transmission Date: 20120825
  Serious: Yes (Other)
  Sender: FDA-Public Use
  Company Number: CA-UCBSA-036439

PATIENT
  Age: 47 Year
  Sex: Female
  Weight: 79.09 kg

DRUGS (10)
  1. NAPROXEN [Concomitant]
     Indication: RHEUMATOID ARTHRITIS
     Route: 048
     Dates: start: 20070101
  2. NAPROXEN [Concomitant]
     Indication: PAIN
     Route: 048
     Dates: start: 20070101
  3. FOLIC ACID [Concomitant]
     Indication: VITAMIN SUPPLEMENTATION
  4. MOMETASONE FUROATE [Concomitant]
     Indication: ECZEMA
  5. NASONEX [Concomitant]
     Indication: SINUS DISORDER
  6. METHOTREXATE [Concomitant]
     Indication: RHEUMATOID ARTHRITIS
     Route: 048
     Dates: start: 20060101
  7. CELEBREX [Concomitant]
     Indication: RHEUMATOID ARTHRITIS
     Route: 048
     Dates: start: 20110101
  8. CIMZIA [Suspect]
     Indication: RHEUMATOID ARTHRITIS
     Dosage: 200MG EVERY 2 WEEKS
     Route: 058
     Dates: start: 20100405
  9. METHOTREXATE [Concomitant]
     Route: 048
     Dates: start: 20070101
  10. ZOVIRAX [Concomitant]
     Indication: ORAL HERPES

REACTIONS (4)
  - ARTHRALGIA [None]
  - CARDIAC MURMUR [None]
  - BONE PAIN [None]
  - CYSTITIS [None]
